FAERS Safety Report 5871546-4 (Version None)
Quarter: 2008Q3

REPORT INFORMATION
  Report Type: 
  Country: None (occurrence: None)
  Receive Date: 20080905
  Receipt Date: 20080421
  Transmission Date: 20090109
  Serious: No
  Sender: FDA-Public Use
  Company Number: A0722215A

PATIENT
  Age: 80 Year
  Sex: Male

DRUGS (2)
  1. REQUIP [Suspect]
     Indication: PERIODIC LIMB MOVEMENT DISORDER
     Dosage: 16MGD PER DAY
     Route: 048
  2. UNKNOWN [Concomitant]

REACTIONS (1)
  - RESTLESS LEGS SYNDROME [None]
